FAERS Safety Report 23796148 (Version 2)
Quarter: 2024Q2

REPORT INFORMATION
  Report Type: Report from Study
  Country: US (occurrence: US)
  Receive Date: 20240429
  Receipt Date: 20240513
  Transmission Date: 20240715
  Serious: Yes (Hospitalization)
  Sender: FDA-Public Use
  Company Number: US-ABBVIE-5732429

PATIENT
  Age: 34 Year
  Sex: Female

DRUGS (1)
  1. SKYRIZI [Suspect]
     Active Substance: RISANKIZUMAB-RZAA
     Indication: Crohn^s disease
     Route: 042
     Dates: start: 20240321

REACTIONS (7)
  - Sepsis [Recovered/Resolved]
  - Chills [Recovering/Resolving]
  - Staphylococcal infection [Recovered/Resolved]
  - Chest pain [Recovering/Resolving]
  - Night sweats [Recovering/Resolving]
  - Pain of skin [Recovering/Resolving]
  - Migraine [Recovering/Resolving]

NARRATIVE: CASE EVENT DATE: 20240417
